FAERS Safety Report 9400103 (Version 1)
Quarter: 2013Q3

REPORT INFORMATION
  Report Type: Spontaneous
  Country: US (occurrence: US)
  Receive Date: 20130715
  Receipt Date: 20130715
  Transmission Date: 20140515
  Serious: Yes (Other)
  Sender: FDA-Public Use
  Company Number: US-COVIDIEN/TYCO HEALTHCARE/MALLINCKRODT-T201302223

PATIENT
  Sex: Male

DRUGS (2)
  1. GABLOFEN [Suspect]
     Indication: MUSCLE SPASTICITY
     Dosage: UNK
     Route: 037
  2. GABLOFEN [Suspect]
     Dosage: 175.2 MCG/DAY
     Route: 037
     Dates: start: 20130515

REACTIONS (4)
  - Cerebrospinal fluid leakage [Unknown]
  - Intervertebral disc injury [Unknown]
  - Drug ineffective [Not Recovered/Not Resolved]
  - Device failure [Unknown]
